FAERS Safety Report 5337501-8 (Version None)
Quarter: 2007Q2

REPORT INFORMATION
  Report Type: 
  Country: None (occurrence: None)
  Receive Date: 20070524
  Receipt Date: 20070517
  Transmission Date: 20071010
  Serious: Yes (Disabling)
  Sender: FDA-Public Use
  Company Number: TOR-2007-0012

PATIENT
  Age: 72 Year
  Sex: Female

DRUGS (3)
  1. FARESTON [Suspect]
     Indication: BREAST CANCER
     Dosage: ORAL
     Route: 048
     Dates: start: 19950818, end: 20020401
  2. ASPIRIN/DIALIMINATE [Concomitant]
  3. MEDROXYPROGESTERONE ACETATE [Concomitant]

REACTIONS (4)
  - PORTAL HYPERTENSION [None]
  - PORTAL VEIN OCCLUSION [None]
  - PORTAL VEIN STENOSIS [None]
  - VARICES OESOPHAGEAL [None]
